FAERS Safety Report 6471756-1 (Version None)
Quarter: 2009Q4

REPORT INFORMATION
  Report Type: 
  Country: None (occurrence: None)
  Receive Date: 20091203
  Receipt Date: 20080310
  Transmission Date: 20100525
  Serious: Yes (Other)
  Sender: FDA-Public Use
  Company Number: US-ELI_LILLY_AND_COMPANY-US200803002200

PATIENT
  Sex: Female

DRUGS (6)
  1. BYETTA [Suspect]
     Indication: TYPE 2 DIABETES MELLITUS
     Dosage: 5 UG, 2/D
     Route: 058
     Dates: start: 20050101
  2. BYETTA [Suspect]
     Dosage: 10 UG, 2/D
     Route: 058
  3. LITHIUM [Concomitant]
     Dates: start: 20010101, end: 20080301
  4. AMARYL [Concomitant]
     Indication: DIABETES MELLITUS
     Dosage: 10 MG, 2/D
     Route: 048
  5. KLONOPIN [Concomitant]
     Dates: start: 20010101
  6. KLONOPIN [Concomitant]
     Dosage: 1.5 MG, UNK
     Dates: start: 20080301

REACTIONS (5)
  - BLOOD GLUCOSE FLUCTUATION [None]
  - FEELING ABNORMAL [None]
  - LOSS OF CONSCIOUSNESS [None]
  - STRESS [None]
  - THERAPEUTIC AGENT TOXICITY [None]
